FAERS Safety Report 4652406-3 (Version None)
Quarter: 2005Q2

REPORT INFORMATION
  Report Type: 
  Country: None (occurrence: None)
  Receive Date: 20050504
  Receipt Date: 20040310
  Transmission Date: 20051028
  Serious: Yes (Hospitalization)
  Sender: FDA-Public Use
  Company Number: GB-SANOFI-SYNTHELABO-D01200400792

PATIENT
  Sex: Male
  Weight: 83.5 kg

DRUGS (12)
  1. SR57746 OR PLACEBO [Suspect]
     Route: 048
     Dates: start: 20031106, end: 20040302
  2. OXALIPLATIN [Suspect]
     Route: 042
     Dates: start: 20040301, end: 20040301
  3. FLUOROURACIL [Suspect]
     Dosage: 400 MG/M2 AS IV BOLUS THEN 600 MG/M2 AS 22 HOURS CONTINUOUS INFUSION D1-D2 Q2W
     Route: 042
     Dates: start: 20040301, end: 20040302
  4. LEUCOVORIN CALCIUM [Suspect]
     Dosage: 200 MG/M2 AS 2 HOURS INFUSION ON D1-D2 Q2W
     Route: 042
     Dates: start: 20040301, end: 20040302
  5. ESCITALOPRAM [Concomitant]
     Dosage: UNK
     Route: 065
     Dates: start: 20040101
  6. THYROXINE [Concomitant]
     Dosage: UNK
     Route: 065
     Dates: start: 20010101
  7. CO-PROXAMOL [Concomitant]
     Dosage: UNK
     Route: 065
     Dates: start: 20000101
  8. ONDANSETRON [Concomitant]
     Dosage: UNK
     Route: 065
     Dates: start: 20031106
  9. DEXAMETHASONE [Concomitant]
     Dosage: UNK
     Route: 065
     Dates: start: 20031106
  10. CHLORHEXIDINE [Concomitant]
     Dosage: UNK
     Route: 065
     Dates: start: 20031106
  11. LOPERAMIDE HCL [Concomitant]
     Dosage: UNK
     Route: 065
     Dates: start: 20031112
  12. LORAZEPAM [Concomitant]
     Dosage: UNK
     Route: 065
     Dates: start: 20031230

REACTIONS (1)
  - INTESTINAL PERFORATION [None]
